FAERS Safety Report 19508515 (Version 3)
Quarter: 2022Q1

REPORT INFORMATION
  Report Type: Spontaneous
  Country: US (occurrence: None)
  Receive Date: 20210708
  Receipt Date: 20220216
  Transmission Date: 20220423
  Serious: Yes (Other)
  Sender: FDA-Public Use
  Company Number: 2021A581567

PATIENT
  Age: 24373 Day
  Sex: Male

DRUGS (51)
  1. NEXIUM [Suspect]
     Active Substance: ESOMEPRAZOLE MAGNESIUM
     Indication: Gastrooesophageal reflux disease
     Route: 048
     Dates: start: 2004, end: 2020
  2. NEXIUM [Suspect]
     Active Substance: ESOMEPRAZOLE MAGNESIUM
     Indication: Gastrooesophageal reflux disease
     Route: 048
     Dates: start: 2004
  3. NEXIUM [Suspect]
     Active Substance: ESOMEPRAZOLE MAGNESIUM
     Indication: Gastrooesophageal reflux disease
     Route: 048
     Dates: start: 2015, end: 2019
  4. PRILOSEC [Suspect]
     Active Substance: OMEPRAZOLE MAGNESIUM
     Indication: Gastrooesophageal reflux disease
     Route: 048
     Dates: start: 2004, end: 2020
  5. PRILOSEC OTC [Suspect]
     Active Substance: OMEPRAZOLE MAGNESIUM
     Indication: Gastrooesophageal reflux disease
     Route: 048
     Dates: start: 2003, end: 2020
  6. PREVACID [Suspect]
     Active Substance: LANSOPRAZOLE
     Indication: Gastrooesophageal reflux disease
     Route: 065
     Dates: start: 2004, end: 2020
  7. PREVACID [Suspect]
     Active Substance: LANSOPRAZOLE
     Indication: Gastrooesophageal reflux disease
     Route: 065
     Dates: start: 2010, end: 2011
  8. PANTOPRAZOLE [Suspect]
     Active Substance: PANTOPRAZOLE
     Indication: Gastrooesophageal reflux disease
     Route: 065
     Dates: start: 2016, end: 2019
  9. RANITIDINE [Concomitant]
     Active Substance: RANITIDINE
  10. BUPROPION [Concomitant]
     Active Substance: BUPROPION
  11. ASTELIN [Concomitant]
     Active Substance: AZELASTINE HYDROCHLORIDE
  12. TAMSULOSIN [Concomitant]
     Active Substance: TAMSULOSIN
  13. ACETAMINOPHEN [Concomitant]
     Active Substance: ACETAMINOPHEN
  14. GABAPENTIN [Concomitant]
     Active Substance: GABAPENTIN
  15. ARIPIPRAZOLE [Concomitant]
     Active Substance: ARIPIPRAZOLE
  16. TRAZODONE [Concomitant]
     Active Substance: TRAZODONE HYDROCHLORIDE
  17. OXYCODONE [Concomitant]
     Active Substance: OXYCODONE
  18. NITROGLYCERIN [Concomitant]
     Active Substance: NITROGLYCERIN
  19. TRAMADOL [Concomitant]
     Active Substance: TRAMADOL
  20. CEPHALEXIN [Concomitant]
     Active Substance: CEPHALEXIN
  21. VITAMINS [Concomitant]
     Active Substance: VITAMINS
  22. NATURAL LATEX RUBBER [Concomitant]
     Active Substance: NATURAL LATEX RUBBER
  23. SERTRALINE [Concomitant]
     Active Substance: SERTRALINE HYDROCHLORIDE
  24. ORPHENADRINE/ACETYLSALICYLIC ACID/PHENACETIN/CAFFEINE [Concomitant]
  25. INDOMETHACIN [Concomitant]
     Active Substance: INDOMETHACIN
  26. CALCIUM\VITAMIN D [Concomitant]
     Active Substance: CALCIUM\VITAMIN D
  27. EXCEDRIN [Concomitant]
     Active Substance: ACETAMINOPHEN\ASPIRIN\CAFFEINE
  28. FLUTICASONE PROPIONATE [Concomitant]
     Active Substance: FLUTICASONE PROPIONATE
  29. ASRELIN [Concomitant]
  30. AMOXIL [Concomitant]
     Active Substance: AMOXICILLIN
  31. FLINTSTONES [Concomitant]
  32. OXYBUTYNIN [Concomitant]
     Active Substance: OXYBUTYNIN
  33. ACETYLCYSTEINE/VITIS VINIFERA SEED/ARGININE/LACTOBACILLUS ACIDOPHILUS/ [Concomitant]
  34. ZOSTAVAX [Concomitant]
     Active Substance: VARICELLA-ZOSTER VIRUS STRAIN OKA/MERCK LIVE ANTIGEN
  35. DOCUSATE SODIUM [Concomitant]
     Active Substance: DOCUSATE SODIUM
  36. SYNTHROID [Concomitant]
     Active Substance: LEVOTHYROXINE SODIUM
  37. VIAGRA [Concomitant]
     Active Substance: SILDENAFIL CITRATE
  38. KETOCONAZOLE [Concomitant]
     Active Substance: KETOCONAZOLE
  39. DOXEPIN [Concomitant]
     Active Substance: DOXEPIN
  40. TEMOVATE [Concomitant]
     Active Substance: CLOBETASOL PROPIONATE
  41. FISH OIL [Concomitant]
     Active Substance: FISH OIL
  42. LIDEX [Concomitant]
     Active Substance: FLUOCINONIDE
  43. MEDROL [Concomitant]
     Active Substance: METHYLPREDNISOLONE
  44. DOXYCYCLINE HYCLATE [Concomitant]
     Active Substance: DOXYCYCLINE HYCLATE
  45. BACTRIM [Concomitant]
     Active Substance: SULFAMETHOXAZOLE\TRIMETHOPRIM
  46. ALLOPURINOL [Concomitant]
     Active Substance: ALLOPURINOL
  47. DICLOFENAC [Concomitant]
     Active Substance: DICLOFENAC
  48. AZITHROMYCIN [Concomitant]
     Active Substance: AZITHROMYCIN
  49. CIPROFLOXACIN [Concomitant]
     Active Substance: CIPROFLOXACIN
  50. AMINOCAPROIC ACID/SULFAMETHOXAZOLE SODIUM/DIPOTASSIUM GLYCYRRHIZATE/CH [Concomitant]
  51. DOXEPIN [Concomitant]
     Active Substance: DOXEPIN

REACTIONS (4)
  - Acute kidney injury [Not Recovered/Not Resolved]
  - Chronic kidney disease [Not Recovered/Not Resolved]
  - Renal failure [Unknown]
  - Gastrooesophageal reflux disease [Not Recovered/Not Resolved]

NARRATIVE: CASE EVENT DATE: 20151121
